FAERS Safety Report 6611569-0 (Version None)
Quarter: 2010Q1

REPORT INFORMATION
  Report Type: 
  Country: None (occurrence: None)
  Receive Date: 20100226
  Receipt Date: 20100226
  Transmission Date: 20100710
  Serious: Yes (Other)
  Sender: FDA-Public Use
  Company Number: None

PATIENT
  Age: 49 Year
  Sex: Female
  Weight: 55.3388 kg

DRUGS (1)
  1. AVELOX [Suspect]
     Indication: LUNG INFECTION
     Dosage: 400MG ONCE A DAY PO
     Route: 048
     Dates: start: 20100204, end: 20100211

REACTIONS (1)
  - TENDONITIS [None]
